FAERS Safety Report 7463213-0 (Version None)
Quarter: 2011Q2

REPORT INFORMATION
  Report Type: 
  Country: None (occurrence: None)
  Receive Date: 20110506
  Receipt Date: 20110502
  Transmission Date: 20111010
  Serious: Yes (Other)
  Sender: FDA-Public Use
  Company Number: US-PFIZER INC-2011056249

PATIENT
  Sex: Female
  Weight: 68.027 kg

DRUGS (6)
  1. PLAQUENIL [Concomitant]
     Indication: FIBROMYALGIA
  2. PLAQUENIL [Concomitant]
     Indication: RHEUMATOID ARTHRITIS
     Dosage: 200 MG, 2X/DAY
  3. METHOTREXATE [Concomitant]
     Indication: FIBROMYALGIA
     Dosage: 0.6 ML, WEEKLY
     Route: 058
     Dates: end: 20100505
  4. GABAPENTIN [Concomitant]
     Indication: PAIN
     Dosage: 300 MG, 1X/DAY
     Dates: end: 20100520
  5. PREDNISONE [Concomitant]
     Dosage: 10 MG, 1X/DAY
     Dates: end: 20100505
  6. LYRICA [Suspect]
     Indication: FIBROMYALGIA
     Dosage: 150 MG, 1X/DAY
     Route: 048
     Dates: start: 20080521, end: 20090101

REACTIONS (3)
  - ONYCHOCLASIS [None]
  - NAIL BED BLEEDING [None]
  - NAIL DISORDER [None]
